FAERS Safety Report 8888424 (Version 1)
Quarter: 2012Q4

REPORT INFORMATION
  Report Type: 
  Country: US (occurrence: US)
  Receive Date: 20121106
  Receipt Date: 20121106
  Transmission Date: 20130627
  Serious: No
  Sender: FDA-Public Use
  Company Number: US-PFIZER INC-2012269440

PATIENT
  Age: 9 Year
  Sex: Female
  Weight: 46.26 kg

DRUGS (5)
  1. CHILDRENS ADVIL [Suspect]
     Indication: FEVER
     Dosage: UNK
     Dates: start: 20121019
  2. TYLENOL [Concomitant]
     Indication: DISCOMFORT
     Dosage: UNK
  3. CHILDREN^S ADVIL [Concomitant]
     Indication: PAIN
     Dosage: UNK
  4. CHILDREN^S ADVIL [Concomitant]
     Indication: SWELLING
  5. HYDROCODONE [Concomitant]
     Indication: PAIN
     Dosage: 5 ml, UNK

REACTIONS (2)
  - Throat irritation [Unknown]
  - Discomfort [Unknown]
